FAERS Safety Report 5003873-7 (Version None)
Quarter: 2006Q2

REPORT INFORMATION
  Report Type: 
  Country: None (occurrence: None)
  Receive Date: 20060515
  Receipt Date: 20060419
  Transmission Date: 20061013
  Serious: No
  Sender: FDA-Public Use
  Company Number: FR-2006-009208

PATIENT
  Sex: Female

DRUGS (1)
  1. BETAFERON(INTERFERON BETA-1B) INJECTION, 250UG [Suspect]
     Indication: MULTIPLE SCLEROSIS
     Dosage: 250 UG, EVERY 2D, SUBCUTANEOUS
     Route: 058

REACTIONS (3)
  - ABDOMINAL PAIN [None]
  - FAT NECROSIS [None]
  - MUSCLE NECROSIS [None]
